FAERS Safety Report 22147971 (Version 1)
Quarter: 2023Q1

REPORT INFORMATION
  Report Type: Spontaneous
  Country: GB (occurrence: GB)
  Receive Date: 20230328
  Receipt Date: 20230328
  Transmission Date: 20230417
  Serious: Yes (Other)
  Sender: FDA-Public Use
  Company Number: GB-NALPROPION PHARMACEUTICALS INC.-GB-2023CUR001157

PATIENT
  Age: 35 Year
  Sex: Female
  Weight: 103 kg

DRUGS (1)
  1. BUPROPION HYDROCHLORIDE\NALTREXONE HYDROCHLORIDE [Suspect]
     Active Substance: BUPROPION HYDROCHLORIDE\NALTREXONE HYDROCHLORIDE
     Indication: Weight decreased
     Dosage: STRENGTH 8/90 MG, CHANGED 1 TABLET AT NIGHT (CHANGED FROM MORNING DUE TO SIDE EFFECTS)
     Route: 065
     Dates: start: 20230310, end: 20230313

REACTIONS (8)
  - Confusional state [Not Recovered/Not Resolved]
  - Oropharyngeal pain [Recovering/Resolving]
  - Myalgia [Recovering/Resolving]
  - Nasal congestion [Recovering/Resolving]
  - Dizziness [Not Recovered/Not Resolved]
  - Headache [Recovering/Resolving]
  - Fatigue [Not Recovered/Not Resolved]
  - Nightmare [Recovering/Resolving]

NARRATIVE: CASE EVENT DATE: 20230312
